FAERS Safety Report 15688660 (Version 6)
Quarter: 2022Q1

REPORT INFORMATION
  Report Type: Spontaneous
  Country: PT (occurrence: PT)
  Receive Date: 20181205
  Receipt Date: 20220317
  Transmission Date: 20220423
  Serious: Yes (Hospitalization, Other)
  Sender: FDA-Public Use
  Company Number: None

PATIENT
  Age: 68 Year
  Sex: Male

DRUGS (7)
  1. ZOLEDRONIC ACID [Suspect]
     Active Substance: ZOLEDRONIC ACID
     Indication: Metastases to bone
     Dosage: 4 MILLIGRAM, EVERY MONTH
     Route: 042
     Dates: start: 201502, end: 2016
  2. ZOLEDRONIC ACID [Suspect]
     Active Substance: ZOLEDRONIC ACID
     Indication: Prostatic adenoma
     Dosage: 4 MILLIGRAM, EVERY 4 WEEK (ADMINISTRATION FOR 15 MINUTES)
     Route: 042
     Dates: start: 201502, end: 2016
  3. CYPROTERONE ACETATE [Concomitant]
     Active Substance: CYPROTERONE ACETATE
     Indication: Metastases to bone
     Dosage: UNK
     Route: 065
     Dates: start: 201502
  4. CYPROTERONE ACETATE [Concomitant]
     Active Substance: CYPROTERONE ACETATE
     Indication: Prostate cancer metastatic
  5. TRIPTORELIN [Concomitant]
     Active Substance: TRIPTORELIN
     Indication: Metastases to bone
     Dosage: UNK
     Route: 065
     Dates: start: 201502
  6. TRIPTORELIN [Concomitant]
     Active Substance: TRIPTORELIN
     Indication: Prostate cancer metastatic
  7. LYSINE [Concomitant]
     Active Substance: LYSINE
     Indication: Product used for unknown indication
     Dosage: UNK
     Route: 065

REACTIONS (20)
  - Fanconi syndrome acquired [Recovered/Resolved]
  - Renal tubular dysfunction [Recovered/Resolved]
  - Acute kidney injury [Recovering/Resolving]
  - Nephropathy toxic [Recovering/Resolving]
  - Hypercreatininaemia [Recovering/Resolving]
  - Hypouricaemia [Recovered/Resolved]
  - Hypomagnesaemia [Recovered/Resolved]
  - Proteinuria [Recovered/Resolved]
  - Acidosis hyperchloraemic [Recovered/Resolved]
  - Hypocalcaemia [Recovered/Resolved]
  - Normocytic anaemia [Recovered/Resolved]
  - Hypokalaemia [Recovered/Resolved]
  - Hyperuricosuria [Recovered/Resolved]
  - Vitamin B12 deficiency [Recovered/Resolved]
  - Hypercalciuria [Recovered/Resolved]
  - Hyperkaliuria [Recovered/Resolved]
  - Hyperphosphaturia [Recovered/Resolved]
  - Hypophosphataemia [Recovered/Resolved]
  - Asthenia [Recovered/Resolved]
  - Decreased appetite [Recovered/Resolved]

NARRATIVE: CASE EVENT DATE: 20160401
